FAERS Safety Report 14630449 (Version 1)
Quarter: 2018Q1

REPORT INFORMATION
  Report Type: Spontaneous
  Country: US (occurrence: US)
  Receive Date: 20180313
  Receipt Date: 20180313
  Transmission Date: 20180509
  Serious: Yes (Life-Threatening, Hospitalization)
  Sender: FDA-Public Use
  Company Number: None

PATIENT
  Age: 4 Week
  Sex: Female
  Weight: 98 kg

DRUGS (8)
  1. PRN LOPERAMIDE [Concomitant]
  2. INSULIN GLARGINE [Concomitant]
     Active Substance: INSULIN GLARGINE
  3. AVYCAZ [Concomitant]
     Active Substance: AVIBACTAM SODIUM\CEFTAZIDIME
  4. DUONEBS [Concomitant]
  5. ARANESP [Concomitant]
     Active Substance: DARBEPOETIN ALFA
  6. ELIQUIS [Suspect]
     Active Substance: APIXABAN
     Indication: ATRIAL FIBRILLATION
     Route: 048
     Dates: start: 20180306, end: 20180312
  7. SLIDING SCALE REGULAR INSULIN [Concomitant]
  8. MIDODRINE [Concomitant]
     Active Substance: MIDODRINE

REACTIONS (6)
  - International normalised ratio increased [None]
  - Rectal haemorrhage [None]
  - Haemoglobin decreased [None]
  - Hypotension [None]
  - Shock haemorrhagic [None]
  - Gastrointestinal haemorrhage [None]

NARRATIVE: CASE EVENT DATE: 20180312
